FAERS Safety Report 12181013 (Version 2)
Quarter: 2016Q2

REPORT INFORMATION
  Report Type: Report from Study
  Country: JP (occurrence: JP)
  Receive Date: 20160315
  Receipt Date: 20160519
  Transmission Date: 20160815
  Serious: No
  Sender: FDA-Public Use
  Company Number: JP-FRI-1000083185

PATIENT
  Age: 37 Year
  Sex: Male
  Weight: 57.2 kg

DRUGS (5)
  1. CARIPRAZINE [Suspect]
     Active Substance: CARIPRAZINE
     Dates: start: 20140905, end: 20141017
  2. CARIPRAZINE [Suspect]
     Active Substance: CARIPRAZINE
     Dates: start: 20141114, end: 20141211
  3. CARIPRAZINE [Suspect]
     Active Substance: CARIPRAZINE
     Dates: start: 20141212, end: 20141226
  4. CARIPRAZINE [Suspect]
     Active Substance: CARIPRAZINE
     Dates: start: 20140724, end: 20140904
  5. CARIPRAZINE [Suspect]
     Active Substance: CARIPRAZINE
     Dates: start: 20141018, end: 20141113

REACTIONS (1)
  - Colour blindness [Not Recovered/Not Resolved]

NARRATIVE: CASE EVENT DATE: 20140804
